FAERS Safety Report 8213456-3 (Version None)
Quarter: 2012Q1

REPORT INFORMATION
  Report Type: 
  Country: None (occurrence: None)
  Receive Date: 20120315
  Receipt Date: 20120305
  Transmission Date: 20120608
  Serious: Yes (Hospitalization)
  Sender: FDA-Public Use
  Company Number: BE-ABBOTT-12P-013-0911387-01

PATIENT
  Sex: Female

DRUGS (22)
  1. HUMIRA [Suspect]
     Indication: CROHN'S DISEASE
     Route: 058
     Dates: start: 20060201
  2. AMLODIPINE BESYLATE [Concomitant]
     Indication: HYPERTENSION
     Dates: start: 20100401
  3. HUMIRA [Suspect]
     Route: 058
  4. FOLIC ACID [Concomitant]
     Indication: VITAMIN SUPPLEMENTATION
     Dates: start: 20111207
  5. HUMIRA [Suspect]
     Route: 058
     Dates: end: 20090121
  6. ENTOCORT EC [Concomitant]
     Indication: CROHN'S DISEASE
     Dates: start: 20050601, end: 20110101
  7. OMEPRAZOLE [Concomitant]
     Indication: GASTRITIS
     Dates: start: 20080401, end: 20110101
  8. DUOVENT [Concomitant]
     Indication: CHRONIC OBSTRUCTIVE PULMONARY DISEASE
  9. AUGMENTIN '125' [Concomitant]
     Indication: PNEUMONIA
     Dates: start: 20120127
  10. METHYLPREDNISOLONE [Concomitant]
     Indication: CHRONIC OBSTRUCTIVE PULMONARY DISEASE
     Dates: start: 20120130
  11. BISOPROLOL FUMARATE [Concomitant]
     Indication: HYPERTENSION
     Dates: start: 20100101
  12. HUMIRA [Suspect]
     Route: 058
     Dates: start: 20080516
  13. SPIRIVA [Concomitant]
     Indication: EMPHYSEMA
     Dates: start: 20081209
  14. CORTICOSTEROIDS [Concomitant]
     Indication: CROHN'S DISEASE
  15. PANTOPRAZOLE [Concomitant]
     Indication: PROPHYLAXIS
     Dates: start: 20110107
  16. HUMIRA [Suspect]
     Route: 058
     Dates: start: 20100630, end: 20101208
  17. REMICADE [Concomitant]
     Indication: CROHN'S DISEASE
  18. ACETAMINOPHEN [Concomitant]
     Indication: ARTHRALGIA
     Dates: start: 20080701
  19. METHOTREXATE [Concomitant]
     Indication: CROHN'S DISEASE
     Dates: start: 20120101
  20. FLUTICASONE PROPIONATE/SALMETEROL [Concomitant]
     Indication: CHRONIC OBSTRUCTIVE PULMONARY DISEASE
     Dates: start: 20100908
  21. IMMUNOSUPPRESSANTS [Concomitant]
     Indication: CROHN'S DISEASE
  22. LORAZEPAM [Concomitant]
     Indication: INSOMNIA
     Dates: start: 20080930, end: 20120201

REACTIONS (5)
  - WEIGHT DECREASED [None]
  - CHRONIC OBSTRUCTIVE PULMONARY DISEASE [None]
  - GENERAL PHYSICAL HEALTH DETERIORATION [None]
  - INTESTINAL OBSTRUCTION [None]
  - CROHN'S DISEASE [None]
